FAERS Safety Report 6733876-3 (Version None)
Quarter: 2010Q2

REPORT INFORMATION
  Report Type: 
  Country: None (occurrence: None)
  Receive Date: 20100520
  Receipt Date: 20100510
  Transmission Date: 20101027
  Serious: No
  Sender: FDA-Public Use
  Company Number: US-ROCHE-699986

PATIENT
  Sex: Male
  Weight: 81.2 kg

DRUGS (4)
  1. AVASTIN [Suspect]
     Dosage: FREQUENCY : EVERY OTHER WK, THERAPY INTERRUPTED.
     Route: 042
     Dates: start: 20080114, end: 20100415
  2. CAMPTOSAR [Concomitant]
     Dosage: FREQUENCY: EVERY OTHER WK.
     Route: 042
  3. LEUCOVORIN CALCIUM [Concomitant]
     Dosage: FREQUENCY: EVERY OTHER WK.
     Route: 042
  4. FLUOROURACIL [Concomitant]
     Dosage: DRUG NAME: 5-FLUOROURACIL, FREQUENCY: EVERY OTHER WK, ROUTE: IVP.
     Route: 048

REACTIONS (1)
  - CATARACT OPERATION [None]
